FAERS Safety Report 8501891-5 (Version None)
Quarter: 2012Q3

REPORT INFORMATION
  Report Type: 
  Country: None (occurrence: None)
  Receive Date: 20120711
  Receipt Date: 20120704
  Transmission Date: 20120928
  Serious: Yes (Other)
  Sender: FDA-Public Use
  Company Number: PHHY2012LB058636

PATIENT
  Age: 9 Year
  Sex: Male

DRUGS (1)
  1. CYCLOSPORINE [Suspect]
     Indication: ALPORT'S SYNDROME

REACTIONS (2)
  - RENAL FAILURE CHRONIC [None]
  - RENAL IMPAIRMENT [None]
